FAERS Safety Report 5107449-2 (Version None)
Quarter: 2006Q3

REPORT INFORMATION
  Report Type: 
  Country: None (occurrence: None)
  Receive Date: 20060919
  Receipt Date: 20060907
  Transmission Date: 20061208
  Serious: Yes (Death, Other)
  Sender: FDA-Public Use
  Company Number: US-JNJFOC-20060901608

PATIENT
  Sex: Female

DRUGS (6)
  1. REMICADE [Suspect]
     Indication: RHEUMATOID ARTHRITIS
     Route: 042
  2. METHOTREXATE [Concomitant]
  3. DARVOCET [Concomitant]
  4. DILTIAZEM HCL [Concomitant]
  5. FOLIC ACID [Concomitant]
  6. CENTRUM MULTIVITAMINS [Concomitant]

REACTIONS (4)
  - CHRONIC OBSTRUCTIVE PULMONARY DISEASE [None]
  - DEATH [None]
  - RESPIRATORY TRACT CARCINOMA IN SITU [None]
  - RHEUMATOID ARTHRITIS [None]
